FAERS Safety Report 18241580 (Version 11)
Quarter: 2022Q3

REPORT INFORMATION
  Report Type: Report from Study
  Country: US (occurrence: US)
  Receive Date: 20200908
  Receipt Date: 20220929
  Transmission Date: 20221026
  Serious: Yes (Other)
  Sender: FDA-Public Use
  Company Number: US-TAKEDA-2020TUS037315

PATIENT
  Age: 57 Year
  Sex: Female

DRUGS (4)
  1. BRIGATINIB [Suspect]
     Active Substance: BRIGATINIB
     Indication: Lung neoplasm malignant
     Dosage: 180 MILLIGRAM
     Route: 048
  2. BRIGATINIB [Suspect]
     Active Substance: BRIGATINIB
     Dosage: 90 MILLIGRAM, QD
     Route: 048
     Dates: start: 20200813
  3. BRIGATINIB [Suspect]
     Active Substance: BRIGATINIB
     Dosage: 90 MILLIGRAM, QD
     Route: 048
     Dates: start: 20220113
  4. FENTANYL [Suspect]
     Active Substance: FENTANYL
     Indication: Product used for unknown indication
     Dosage: UNK
     Route: 065

REACTIONS (20)
  - Renal impairment [Recovered/Resolved]
  - Throat irritation [Recovering/Resolving]
  - Liver function test increased [Recovered/Resolved]
  - Hyperphagia [Unknown]
  - Weight increased [Unknown]
  - Epistaxis [Unknown]
  - Nodule [Unknown]
  - Memory impairment [Unknown]
  - Dry skin [Unknown]
  - Muscle spasms [Unknown]
  - Paraesthesia [Unknown]
  - Pruritus [Unknown]
  - Dyspnoea [Unknown]
  - Cough [Recovering/Resolving]
  - Fatigue [Unknown]
  - Headache [Unknown]
  - Migraine [Unknown]
  - Decreased appetite [Unknown]
  - Urinary tract infection [Not Recovered/Not Resolved]
  - Product dose omission issue [Unknown]

NARRATIVE: CASE EVENT DATE: 20200813
